FAERS Safety Report 21216005 (Version 20)
Quarter: 2024Q3

REPORT INFORMATION
  Report Type: Report from Study
  Country: US (occurrence: US)
  Receive Date: 20220816
  Receipt Date: 20240927
  Transmission Date: 20241016
  Serious: No
  Sender: NOVARTIS
  Company Number: US-NOVARTISTESTPH-NVSC2022US184347

PATIENT
  Sex: Female

DRUGS (6)
  1. COSENTYX [Suspect]
     Active Substance: SECUKINUMAB
     Indication: Psoriasis
     Dosage: UNK
     Route: 065
  2. COSENTYX [Suspect]
     Active Substance: SECUKINUMAB
     Indication: Psoriatic arthropathy
     Dosage: 300 MG, QW
     Route: 058
  3. COSENTYX [Suspect]
     Active Substance: SECUKINUMAB
     Dosage: 300 MG, QMO
     Route: 058
  4. COSENTYX [Suspect]
     Active Substance: SECUKINUMAB
     Dosage: 300 MG, QMO
     Route: 058
  5. COSENTYX [Suspect]
     Active Substance: SECUKINUMAB
     Dosage: UNK
     Route: 065
  6. PROBIOTICS NOS [Suspect]
     Active Substance: PROBIOTICS NOS
     Indication: Product used for unknown indication
     Dosage: UNK
     Route: 065

REACTIONS (11)
  - COVID-19 [Unknown]
  - Irritable bowel syndrome [Recovering/Resolving]
  - Weight decreased [Unknown]
  - Arthritis [Recovering/Resolving]
  - Diarrhoea [Not Recovered/Not Resolved]
  - Pruritus [Recovered/Resolved]
  - Hypersensitivity [Unknown]
  - Psoriasis [Unknown]
  - Rash [Unknown]
  - Skin discolouration [Unknown]
  - Gastrointestinal disorder [Unknown]
